FAERS Safety Report 5255634-1 (Version None)
Quarter: 2007Q1

REPORT INFORMATION
  Report Type: 
  Country: None (occurrence: None)
  Receive Date: 20070305
  Receipt Date: 20070221
  Transmission Date: 20070707
  Serious: Yes (Death, Other)
  Sender: FDA-Public Use
  Company Number: JP-PFIZER INC-2007014426

PATIENT
  Age: 45 Year
  Sex: Female

DRUGS (6)
  1. VFEND [Suspect]
     Indication: BRONCHOPULMONARY ASPERGILLOSIS
  2. CYTARABINE [Concomitant]
     Route: 042
  3. ETOPOSIDE [Concomitant]
  4. FLUDARABINE [Concomitant]
     Route: 042
  5. MELPHALAN [Concomitant]
  6. TACROLIMUS [Concomitant]

REACTIONS (7)
  - BRONCHOPULMONARY ASPERGILLOSIS [None]
  - CEREBRAL HAEMORRHAGE [None]
  - DISEASE RECURRENCE [None]
  - ENDOCARDITIS [None]
  - LIVER ABSCESS [None]
  - RENAL ABSCESS [None]
  - SYSTEMIC CANDIDA [None]
